FAERS Safety Report 5502086-X (Version None)
Quarter: 2007Q4

REPORT INFORMATION
  Report Type: 
  Country: None (occurrence: None)
  Receive Date: 20071019
  Receipt Date: 20060914
  Transmission Date: 20080405
  Serious: Yes (Hospitalization)
  Sender: FDA-Public Use
  Company Number: PHEH2006US07695

PATIENT
  Age: 80 Year
  Sex: Male

DRUGS (2)
  1. ZOMETA [Suspect]
     Indication: PROSTATE CANCER METASTATIC
     Dosage: 4 MG MONTHLY, INFUSION
     Dates: start: 20060420
  2. ZOLADEX (GODERELIN [Concomitant]

REACTIONS (1)
  - BONE PAIN [None]
